FAERS Safety Report 6918644-1 (Version None)
Quarter: 2010Q3

REPORT INFORMATION
  Report Type: 
  Country: None (occurrence: None)
  Receive Date: 20100811
  Receipt Date: 20100731
  Transmission Date: 20110219
  Serious: Yes (Other)
  Sender: FDA-Public Use
  Company Number: US-PFIZER INC-2010096856

PATIENT
  Sex: Female

DRUGS (1)
  1. GEODON [Suspect]
     Dosage: UNK

REACTIONS (7)
  - COMA [None]
  - DYSKINESIA [None]
  - EYE DISORDER [None]
  - NIGHTMARE [None]
  - SYNCOPE [None]
  - TARDIVE DYSKINESIA [None]
  - WITHDRAWAL SYNDROME [None]
